FAERS Safety Report 21341455 (Version 1)
Quarter: 2022Q3

REPORT INFORMATION
  Report Type: Spontaneous
  Country: US (occurrence: US)
  Receive Date: 20220916
  Receipt Date: 20220916
  Transmission Date: 20221027
  Serious: No
  Sender: FDA-Public Use
  Company Number: US-BoehringerIngelheim-2022-BI-192490

PATIENT
  Sex: Male

DRUGS (1)
  1. COMBIVENT RESPIMAT [Suspect]
     Active Substance: ALBUTEROL SULFATE\IPRATROPIUM BROMIDE
     Indication: Drug therapy
     Dosage: 3-4 PUFFS DAILY AS NEEDED
     Route: 055
     Dates: start: 2002

REACTIONS (2)
  - Off label use [Unknown]
  - Product quality issue [Unknown]
